FAERS Safety Report 17482530 (Version 2)
Quarter: 2020Q1

REPORT INFORMATION
  Report Type: Spontaneous
  Country: CZ (occurrence: CZ)
  Receive Date: 20200302
  Receipt Date: 20200305
  Transmission Date: 20200409
  Serious: Yes (Other)
  Sender: FDA-Public Use
  Company Number: CZ-MYLANLABS-2020M1021833

PATIENT
  Age: 73 Year
  Sex: Female

DRUGS (2)
  1. SALBUTAMOL [Suspect]
     Active Substance: ALBUTEROL
     Indication: PRODUCT USED FOR UNKNOWN INDICATION
     Dosage: UNK
     Route: 065
  2. FORMOTEROL [Suspect]
     Active Substance: FORMOTEROL
     Indication: PRODUCT USED FOR UNKNOWN INDICATION
     Dosage: UNK
     Route: 065

REACTIONS (11)
  - Metastatic neoplasm [Recovering/Resolving]
  - Lung neoplasm malignant [Unknown]
  - Productive cough [Not Recovered/Not Resolved]
  - Squamous cell carcinoma [Recovering/Resolving]
  - Lymphadenopathy mediastinal [Unknown]
  - Lymphadenopathy [Unknown]
  - Aortic aneurysm [Unknown]
  - Pyrexia [Recovered/Resolved]
  - Emphysema [Recovering/Resolving]
  - Fatigue [Recovered/Resolved]
  - Breast cancer [Unknown]
